FAERS Safety Report 21896459 (Version 1)
Quarter: 2023Q1

REPORT INFORMATION
  Report Type: Spontaneous
  Country: US (occurrence: US)
  Receive Date: 20230123
  Receipt Date: 20230123
  Transmission Date: 20230417
  Serious: Yes (Other)
  Sender: FDA-Public Use
  Company Number: US-MLMSERVICE-20221228-3999879-3

PATIENT
  Age: 67 Year
  Sex: Female

DRUGS (6)
  1. EXEMESTANE [Suspect]
     Active Substance: EXEMESTANE
     Indication: Ovarian granulosa cell tumour
     Dosage: UNK UNK, ONCE A DAY
     Route: 048
  2. EXEMESTANE [Suspect]
     Active Substance: EXEMESTANE
     Indication: Neoplasm recurrence
  3. LEUPROLIDE [Suspect]
     Active Substance: LEUPROLIDE
     Indication: Ovarian granulosa cell tumour
     Dosage: 7.5 MILLIGRAM(EVERY-FOUR WEEKS)
     Route: 030
  4. LEUPROLIDE [Suspect]
     Active Substance: LEUPROLIDE
     Indication: Neoplasm recurrence
  5. BICALUTAMIDE [Suspect]
     Active Substance: BICALUTAMIDE
     Indication: Ovarian granulosa cell tumour
     Dosage: 50 MILLIGRAM, ONCE A DAY
     Route: 048
  6. BICALUTAMIDE [Suspect]
     Active Substance: BICALUTAMIDE
     Indication: Neoplasm recurrence

REACTIONS (1)
  - Arthralgia [Unknown]
